FAERS Safety Report 7338253-2 (Version None)
Quarter: 2011Q1

REPORT INFORMATION
  Report Type: 
  Country: None (occurrence: None)
  Receive Date: 20110308
  Receipt Date: 20110227
  Transmission Date: 20110831
  Serious: Yes (Hospitalization, Other)
  Sender: FDA-Public Use
  Company Number: ES-ELI_LILLY_AND_COMPANY-ES201012000392

PATIENT
  Age: 55 Year
  Sex: Male

DRUGS (9)
  1. ALLOPURINOL [Concomitant]
     Indication: HYPERURICAEMIA
     Dosage: 300 MG, DAILY (1/D)
  2. BYETTA [Suspect]
     Dosage: 10 UG, 2/D
     Dates: start: 20101029, end: 20101101
  3. HYDROCHLOROTHIAZIDE [Concomitant]
     Indication: HYPERTENSION
     Dosage: 25 MG, DAILY (1/D)
     Dates: start: 20100505
  4. SIMVASTATINA [Concomitant]
     Indication: DYSLIPIDAEMIA
     Dosage: 20 MG, DAILY (1/D)
  5. VALSARTAN [Concomitant]
     Indication: HYPERTENSION
     Dosage: 180 MG, DAILY (1/D)
     Dates: start: 20100505
  6. OMACOR [Concomitant]
     Indication: DYSLIPIDAEMIA
     Dosage: 2 D/F, DAILY (1/D)
     Dates: start: 20091005
  7. DILTIAZEM [Concomitant]
     Dosage: 240 MG, DAILY (1/D)
  8. BYETTA [Suspect]
     Indication: TYPE 2 DIABETES MELLITUS
     Dosage: 5 UG, 2/D
     Route: 065
     Dates: start: 20101014, end: 20101028
  9. METFORMIN [Concomitant]
     Indication: TYPE 2 DIABETES MELLITUS
     Dosage: 850 MG, 2/D
     Dates: start: 20100110

REACTIONS (8)
  - RENAL FAILURE ACUTE [None]
  - GASTROENTERITIS [None]
  - LEUKOCYTOSIS [None]
  - NEUTROPHILIA [None]
  - RENAL FAILURE [None]
  - DEHYDRATION [None]
  - PYREXIA [None]
  - INFECTION [None]
